FAERS Safety Report 10441836 (Version 2)
Quarter: 2014Q3

REPORT INFORMATION
  Report Type: Spontaneous
  Country: BR (occurrence: BR)
  Receive Date: 20140909
  Receipt Date: 20140909
  Transmission Date: 20150326
  Serious: Yes (Other)
  Sender: FDA-Public Use
  Company Number: BR-PFIZER INC-2014168863

PATIENT
  Age: 81 Year
  Sex: Female
  Weight: 50 kg

DRUGS (6)
  1. GENTEAL MILD [Concomitant]
     Active Substance: HYPROMELLOSE 2910 (4000 MPA.S)
     Indication: EYE DISORDER
     Dosage: UNK, ONCE OR TWICE A DAY
     Dates: start: 2006
  2. COMBIGAN [Concomitant]
     Active Substance: BRIMONIDINE TARTRATE\TIMOLOL MALEATE
     Indication: GLAUCOMA
     Dosage: 1 DF, 1 DROP IN EACH EYE THREE TIMES A DAY
     Route: 047
     Dates: start: 2006
  3. BLEPHAGEL [Concomitant]
     Indication: EYE DISORDER
  4. XALATAN [Suspect]
     Active Substance: LATANOPROST
     Indication: GLAUCOMA
     Dosage: 3 UG, 1 DROP IN EACH EYE THREE TIMES A DAY
     Route: 047
     Dates: start: 2006
  5. XALATAN [Suspect]
     Active Substance: LATANOPROST
     Indication: CATARACT
  6. AZOPT [Concomitant]
     Active Substance: BRINZOLAMIDE
     Indication: GLAUCOMA
     Dosage: 1 DROP IN LEFT EYE A DAY
     Route: 047
     Dates: start: 2006

REACTIONS (3)
  - Off label use [Not Recovered/Not Resolved]
  - Optic nerve disorder [Not Recovered/Not Resolved]
  - Visual field defect [Not Recovered/Not Resolved]

NARRATIVE: CASE EVENT DATE: 2007
